FAERS Safety Report 7680933-3 (Version None)
Quarter: 2011Q3

REPORT INFORMATION
  Report Type: 
  Country: None (occurrence: None)
  Receive Date: 20110811
  Receipt Date: 20110811
  Transmission Date: 20111222
  Serious: Yes (Hospitalization)
  Sender: FDA-Public Use
  Company Number: None

PATIENT
  Age: 56 Year
  Sex: Female

DRUGS (1)
  1. XELODA [Suspect]
     Dosage: 1500MG BY MOUTH TWICE DAILY
     Route: 048
     Dates: start: 20110422

REACTIONS (2)
  - INCOHERENT [None]
  - THROMBOSIS [None]
